FAERS Safety Report 9162123 (Version 1)
Quarter: 2013Q1

REPORT INFORMATION
  Report Type: Other
  Country: GB (occurrence: GB)
  Receive Date: 20130314
  Receipt Date: 20130314
  Transmission Date: 20140127
  Serious: Yes (Other)
  Sender: FDA-Public Use
  Company Number: GB-PERRIGO-13GB002343

PATIENT
  Age: 4 Year
  Sex: Male
  Weight: 17 kg

DRUGS (7)
  1. IBUPROFEN [Suspect]
     Indication: PRODUCT USED FOR UNKNOWN INDICATION
     Dosage: UNK
     Route: 065
     Dates: start: 20130220
  2. IBUPROFEN [Suspect]
     Dosage: UNK
     Route: 065
     Dates: start: 20120214, end: 20130111
  3. CHLORPHENAMINE [Concomitant]
     Indication: PRODUCT USED FOR UNKNOWN INDICATION
     Dosage: UNK
     Route: 065
     Dates: start: 20121214, end: 20130111
  4. ERYTHROMYCIN ETHYLSUCCINATE [Concomitant]
     Indication: PRODUCT USED FOR UNKNOWN INDICATION
     Dosage: UNK
     Route: 065
     Dates: start: 20121214, end: 20121219
  5. PHENOXYMETHYLPENICILLIN [Concomitant]
     Indication: PRODUCT USED FOR UNKNOWN INDICATION
     Dosage: UNK
     Route: 065
     Dates: start: 20130205, end: 20130212
  6. PHENOXYMETHYLPENICILLIN [Concomitant]
     Dosage: UNK
     Route: 065
     Dates: start: 20121214, end: 20121219
  7. CETRABEN [Concomitant]
     Indication: PRODUCT USED FOR UNKNOWN INDICATION
     Dosage: UNK
     Route: 065

REACTIONS (2)
  - Angioedema [Unknown]
  - Urticaria [Recovering/Resolving]
